FAERS Safety Report 25199281 (Version 3)
Quarter: 2025Q4

REPORT INFORMATION
  Report Type: Spontaneous
  Country: US (occurrence: None)
  Receive Date: 20250415
  Receipt Date: 20251229
  Transmission Date: 20260117
  Serious: No
  Sender: CHIESI
  Company Number: US-CHIESI-2025CHF01331

PATIENT
  Sex: Female
  Weight: 43.1 kg

DRUGS (2)
  1. FILSUVEZ [Suspect]
     Active Substance: BIRCH TRITERPENES
     Indication: Epidermolysis bullosa
     Dosage: UNK, PRN
     Route: 048
     Dates: start: 20250210, end: 2025
  2. FILSUVEZ [Suspect]
     Active Substance: BIRCH TRITERPENES
     Dosage: UNK, PRN
     Route: 048

REACTIONS (4)
  - Wound complication [Not Recovered/Not Resolved]
  - Wound infection [Recovering/Resolving]
  - Illness [Recovering/Resolving]
  - Skin irritation [Unknown]

NARRATIVE: CASE EVENT DATE: 20250101
